FAERS Safety Report 16668679 (Version 1)
Quarter: 2019Q3

REPORT INFORMATION
  Report Type: Spontaneous
  Country: US (occurrence: US)
  Receive Date: 20190804
  Receipt Date: 20190804
  Transmission Date: 20191004
  Serious: Yes (Other)
  Sender: FDA-Public Use
  Company Number: None

PATIENT
  Age: 69 Year
  Sex: Female
  Weight: 36 kg

DRUGS (8)
  1. DAILY VITAMIN [Concomitant]
     Active Substance: VITAMINS
  2. ALTERNATE DAYS 5000 UNITS D3 [Concomitant]
  3. DAILY CALCIUM/MAGNESIUM TABLET [Concomitant]
  4. DAILY PRO-BIOTIC [Concomitant]
  5. PROLIA [Suspect]
     Active Substance: DENOSUMAB
     Indication: OSTEOPOROSIS
     Dosage: ?          QUANTITY:1 INJECTION(S);OTHER FREQUENCY: 1X EVERY 6 MONTHS;OTHER ROUTE:INJECTED INTO UPPER RIGHT ARM BY NURSE?THERAPY ONGOING: Y?
     Dates: start: 20180803, end: 20180803
  6. DAILY OMEGA 3/6/9 FISH CAPSULES [Concomitant]
  7. DAILY PRE-BIOTIC [Concomitant]
  8. DAILY POTASSIUM TABLET [Concomitant]

REACTIONS (13)
  - Atrial fibrillation [None]
  - Rhinorrhoea [None]
  - Hyperhidrosis [None]
  - Burn oesophageal [None]
  - Sinus node dysfunction [None]
  - Cold sweat [None]
  - Throat tightness [None]
  - Influenza like illness [None]
  - Swelling of eyelid [None]
  - Lymphadenopathy [None]
  - Oropharyngeal pain [None]
  - Nasal congestion [None]
  - Dysphagia [None]

NARRATIVE: CASE EVENT DATE: 20180803
